FAERS Safety Report 7194418-4 (Version None)
Quarter: 2010Q4

REPORT INFORMATION
  Report Type: 
  Country: None (occurrence: None)
  Receive Date: 20101124
  Receipt Date: 20101012
  Transmission Date: 20110411
  Serious: Yes (Other)
  Sender: FDA-Public Use
  Company Number: 019916

PATIENT
  Sex: Male

DRUGS (2)
  1. LACOSAMIDE [Suspect]
     Dosage: (100 MG BID, 100 MG IN AM AND 100 MG IN PM)
  2. KEPPRA [Suspect]

REACTIONS (7)
  - AMNESIA [None]
  - DIZZINESS [None]
  - FEELING ABNORMAL [None]
  - MUSCLE TIGHTNESS [None]
  - STRESS [None]
  - SUICIDAL BEHAVIOUR [None]
  - THINKING ABNORMAL [None]
